FAERS Safety Report 9672133 (Version 2)
Quarter: 2013Q4

REPORT INFORMATION
  Report Type: Report from Study
  Country: CA (occurrence: CA)
  Receive Date: 20131106
  Receipt Date: 20131221
  Transmission Date: 20140711
  Serious: Yes (Life-Threatening, Hospitalization)
  Sender: FDA-Public Use
  Company Number: PHHY2013CA125940

PATIENT
  Sex: Male

DRUGS (4)
  1. ACLASTA [Suspect]
     Indication: OSTEOPOROSIS
     Dosage: UNK
     Route: 042
     Dates: start: 20090713
  2. ACLASTA [Suspect]
     Dosage: UNK
     Route: 042
     Dates: start: 20100617
  3. ACLASTA [Suspect]
     Dosage: UNK
     Route: 042
     Dates: start: 20110718
  4. ACLASTA [Suspect]
     Dosage: UNK
     Route: 042
     Dates: start: 20120911

REACTIONS (3)
  - Nasal neoplasm [Recovered/Resolved with Sequelae]
  - Precancerous skin lesion [Recovered/Resolved with Sequelae]
  - Abdominal hernia [Unknown]
